FAERS Safety Report 22648347 (Version 1)
Quarter: 2023Q2

REPORT INFORMATION
  Report Type: Spontaneous
  Country: US (occurrence: None)
  Receive Date: 20230628
  Receipt Date: 20230628
  Transmission Date: 20230722
  Serious: No
  Sender: FDA-Public Use
  Company Number: US-ROCHE-3373424

PATIENT
  Sex: Female

DRUGS (1)
  1. OCREVUS [Suspect]
     Active Substance: OCRELIZUMAB
     Indication: Relapsing-remitting multiple sclerosis
     Dosage: SECOND DOSE ON 22/JUN/2023
     Route: 065
     Dates: start: 20230607

REACTIONS (2)
  - Human papilloma virus test positive [Unknown]
  - Bacterial vaginosis [Unknown]
